FAERS Safety Report 5709123-8 (Version None)
Quarter: 2008Q2

REPORT INFORMATION
  Report Type: 
  Country: None (occurrence: None)
  Receive Date: 20080416
  Receipt Date: 20080416
  Transmission Date: 20081010
  Serious: Yes (Other)
  Sender: FDA-Public Use
  Company Number: None

PATIENT
  Age: 7 Year
  Sex: Male
  Weight: 37.195 kg

DRUGS (2)
  1. SINGULAIR [Suspect]
     Indication: ALLERGIC SINUSITIS
     Dosage: 1 5MG TABLET ONCE AT BEDTIME
     Dates: start: 20030101, end: 20040501
  2. SINGULAIR [Suspect]
     Indication: ALLERGIC SINUSITIS
     Dosage: 1 5MG TABLET ONCE AT BEDTIME
     Dates: start: 20080201, end: 20080410

REACTIONS (6)
  - AGGRESSION [None]
  - ANGER [None]
  - COUGH [None]
  - EDUCATIONAL PROBLEM [None]
  - PAIN IN EXTREMITY [None]
  - SCREAMING [None]
